FAERS Safety Report 13095602 (Version 2)
Quarter: 2017Q1

REPORT INFORMATION
  Report Type: Spontaneous
  Country: FR (occurrence: FR)
  Receive Date: 20170108
  Receipt Date: 20170308
  Transmission Date: 20170428
  Serious: Yes (Hospitalization)
  Sender: FDA-Public Use
  Company Number: FR-ROCHE-1875624

PATIENT
  Age: 51 Year
  Sex: Male

DRUGS (3)
  1. AVASTIN [Suspect]
     Active Substance: BEVACIZUMAB
     Indication: LUNG ADENOCARCINOMA
     Dosage: 7.5 MG/KG?CYCLE 3: 28/AUG/2012. CYCLE 4: 18/SEP/2012. CYCLE 5: 17/OCT/2012
     Route: 042
     Dates: start: 20120717, end: 20121219
  2. ALIMTA [Suspect]
     Active Substance: PEMETREXED DISODIUM
     Indication: LUNG ADENOCARCINOMA
     Dosage: 500 MG/M2?CYCLE 3: 28/AUG/2012. CYCLE 4: 18/SEP/2012. CYCLE 5: 17/OCT/2012
     Route: 042
     Dates: start: 20120717, end: 20121219
  3. CISPLATINE [Suspect]
     Active Substance: CISPLATIN
     Indication: LUNG ADENOCARCINOMA
     Dosage: 75 MG/M?CYCLE 3: 28/AUG/2012. CYCLE 4: 18/SEP/2012.
     Route: 042
     Dates: start: 20120717, end: 20120918

REACTIONS (2)
  - Anaemia [Recovered/Resolved]
  - Depression [Recovering/Resolving]

NARRATIVE: CASE EVENT DATE: 20121006
